FAERS Safety Report 4872288-4 (Version None)
Quarter: 2005Q4

REPORT INFORMATION
  Report Type: 
  Country: None (occurrence: None)
  Receive Date: 20051201
  Receipt Date: 20050802
  Transmission Date: 20060501
  Serious: No
  Sender: FDA-Public Use
  Company Number: 2005PV000793

PATIENT
  Age: 83 Year
  Sex: Male
  Weight: 68.0396 kg

DRUGS (9)
  1. BYETTA [Suspect]
     Indication: DIABETES MELLITUS NON-INSULIN-DEPENDENT
     Dosage: 5 MCG;BID;SC
     Route: 058
     Dates: start: 20050710
  2. AMARYL [Concomitant]
  3. ACTOS [Concomitant]
  4. LASIX [Concomitant]
  5. PACERONE [Concomitant]
  6. K-DUR 10 [Concomitant]
  7. METOPROLOL [Concomitant]
  8. LIPITOR [Concomitant]
  9. DIOVAN [Concomitant]

REACTIONS (4)
  - ABDOMINAL PAIN [None]
  - BLOOD GLUCOSE INCREASED [None]
  - DIARRHOEA [None]
  - FLATULENCE [None]
